FAERS Safety Report 16289125 (Version 3)
Quarter: 2021Q3

REPORT INFORMATION
  Report Type: Spontaneous
  Country: US (occurrence: US)
  Receive Date: 20190509
  Receipt Date: 20210723
  Transmission Date: 20211014
  Serious: Yes (Hospitalization, Other)
  Sender: FDA-Public Use
  Company Number: US-ASTRAZENECA-2019SE62878

PATIENT
  Age: 11332 Day
  Sex: Female
  Weight: 70.3 kg

DRUGS (50)
  1. NEXIUM 24HR [Suspect]
     Active Substance: ESOMEPRAZOLE MAGNESIUM
     Indication: GASTROOESOPHAGEAL REFLUX DISEASE
     Route: 048
     Dates: start: 201409, end: 201411
  2. NEXIUM [Suspect]
     Active Substance: ESOMEPRAZOLE MAGNESIUM
     Indication: GASTROOESOPHAGEAL REFLUX DISEASE
     Dosage: GENERIC
     Route: 065
     Dates: start: 20150112, end: 20151204
  3. PRILOSEC [Suspect]
     Active Substance: OMEPRAZOLE MAGNESIUM
     Indication: GASTROOESOPHAGEAL REFLUX DISEASE
     Route: 048
     Dates: start: 20070404, end: 20070822
  4. PROTONIX [Suspect]
     Active Substance: PANTOPRAZOLE SODIUM
     Indication: GASTROOESOPHAGEAL REFLUX DISEASE
     Route: 065
     Dates: start: 20060821
  5. ONDANSETRON [Concomitant]
     Active Substance: ONDANSETRON
     Indication: VOMITING
     Dates: start: 20161231, end: 20170619
  6. COZAAR [Concomitant]
     Active Substance: LOSARTAN POTASSIUM
  7. HEPARIN [Concomitant]
     Active Substance: HEPARIN SODIUM
     Dates: start: 20161111
  8. PROTONIX [Suspect]
     Active Substance: PANTOPRAZOLE SODIUM
     Indication: GASTROOESOPHAGEAL REFLUX DISEASE
     Route: 065
     Dates: start: 20070913
  9. COREG [Concomitant]
     Active Substance: CARVEDILOL
  10. ZOFRAN [Concomitant]
     Active Substance: ONDANSETRON HYDROCHLORIDE
  11. TRANSDERM SCOP [Concomitant]
     Active Substance: SCOPOLAMINE
  12. PRILOSEC OTC [Suspect]
     Active Substance: OMEPRAZOLE MAGNESIUM
     Indication: GASTROOESOPHAGEAL REFLUX DISEASE
     Route: 048
     Dates: start: 20070904, end: 20070913
  13. PREVACID [Suspect]
     Active Substance: LANSOPRAZOLE
     Indication: GASTROOESOPHAGEAL REFLUX DISEASE
     Route: 065
     Dates: start: 20090528, end: 20100310
  14. FUROSEMIDE. [Concomitant]
     Active Substance: FUROSEMIDE
     Dates: start: 20110822
  15. DELTASONE [Concomitant]
     Active Substance: PREDNISONE
     Dates: start: 20060129
  16. LIDOCAINE. [Concomitant]
     Active Substance: LIDOCAINE
     Dates: start: 20060129
  17. PROTONIX [Suspect]
     Active Substance: PANTOPRAZOLE SODIUM
     Indication: GASTROOESOPHAGEAL REFLUX DISEASE
     Route: 065
     Dates: start: 20070901
  18. PROTONIX [Suspect]
     Active Substance: PANTOPRAZOLE SODIUM
     Indication: GASTROOESOPHAGEAL REFLUX DISEASE
     Dosage: GENERIC
     Route: 065
     Dates: start: 20130321
  19. ONDANSETRON [Concomitant]
     Active Substance: ONDANSETRON
     Indication: NAUSEA
     Dates: start: 20161231, end: 20170619
  20. CARDURA [Concomitant]
     Active Substance: DOXAZOSIN MESYLATE
  21. VITAMIN D [Concomitant]
     Active Substance: VITAMIN D NOS
  22. APRESOLINE HYDROCHLORIDE [Concomitant]
     Active Substance: HYDRALAZINE HYDROCHLORIDE
  23. ENULOSE [Concomitant]
     Active Substance: LACTULOSE
  24. ANCEF [Concomitant]
     Active Substance: CEFAZOLIN SODIUM
  25. TYLENOL [Concomitant]
     Active Substance: ACETAMINOPHEN
  26. HYDROXYCHLOROQUINE [Concomitant]
     Active Substance: HYDROXYCHLOROQUINE
     Dates: start: 20060129
  27. NEXIUM [Suspect]
     Active Substance: ESOMEPRAZOLE MAGNESIUM
     Indication: GASTROOESOPHAGEAL REFLUX DISEASE
     Dosage: 20?40 MG
     Route: 048
     Dates: start: 20060830, end: 20070316
  28. PROTONIX [Suspect]
     Active Substance: PANTOPRAZOLE SODIUM
     Indication: GASTROOESOPHAGEAL REFLUX DISEASE
     Dosage: GENERIC
     Route: 065
     Dates: start: 20130927
  29. AMLODIPINE [Concomitant]
     Active Substance: AMLODIPINE BESYLATE
     Indication: HYPERTENSION
     Dates: start: 20161010, end: 20161217
  30. MINOXIDIL. [Concomitant]
     Active Substance: MINOXIDIL
     Indication: HYPERTENSION
     Dates: start: 20161027, end: 20161201
  31. ALBUTEROL. [Concomitant]
     Active Substance: ALBUTEROL
  32. CATAPRES [Concomitant]
     Active Substance: CLONIDINE HYDROCHLORIDE
  33. TUMS [Concomitant]
     Active Substance: CALCIUM CARBONATE
  34. TRANDATE [Concomitant]
     Active Substance: LABETALOL HYDROCHLORIDE
  35. LOPRESSOR [Concomitant]
     Active Substance: METOPROLOL TARTRATE
  36. AMITRIPTYLINE [Concomitant]
     Active Substance: AMITRIPTYLINE
     Dates: start: 20140821
  37. NICOTINAMIDE/CYANOCOBALAMIN/CYPROHEPTADINE/ALPHA?AMYLASE SWINE PANCREAS/PEPSIN/THIAMINE/RIBOFLAVIN/P [Concomitant]
     Dates: start: 20140211
  38. RANITIDINE. [Concomitant]
     Active Substance: RANITIDINE
     Dates: start: 20140424
  39. FERROUS SULFATE. [Concomitant]
     Active Substance: FERROUS SULFATE
     Dates: start: 20060129
  40. MYCOPHENOLATE [Concomitant]
     Active Substance: MYCOPHENOLIC ACID
     Dates: start: 20141114
  41. PROCHLORPERAZINE. [Concomitant]
     Active Substance: PROCHLORPERAZINE
     Dates: start: 20090717
  42. FOLIC ACID. [Concomitant]
     Active Substance: FOLIC ACID
     Indication: ANAEMIA
     Dates: start: 20161027, end: 20170227
  43. LYRICA [Concomitant]
     Active Substance: PREGABALIN
  44. PROCRIT [Concomitant]
     Active Substance: ERYTHROPOIETIN
  45. NYSTATIN. [Concomitant]
     Active Substance: NYSTATIN
     Dates: start: 20090717
  46. PROTONIX [Suspect]
     Active Substance: PANTOPRAZOLE SODIUM
     Indication: GASTROOESOPHAGEAL REFLUX DISEASE
     Dosage: GENERIC
     Route: 065
     Dates: start: 20130428
  47. NORVASC [Concomitant]
     Active Substance: AMLODIPINE BESYLATE
  48. SENOKOT [Concomitant]
     Active Substance: SENNOSIDES
  49. OMNIPAQUE [Concomitant]
     Active Substance: IOHEXOL
     Dates: start: 20161110
  50. HYDROXYZINE [Concomitant]
     Active Substance: HYDROXYZINE HYDROCHLORIDE
     Dates: start: 20150412

REACTIONS (6)
  - Acute kidney injury [Unknown]
  - End stage renal disease [Not Recovered/Not Resolved]
  - Renal failure [Unknown]
  - Hyperkalaemia [Unknown]
  - Chronic kidney disease [Not Recovered/Not Resolved]
  - Nephrogenic anaemia [Unknown]

NARRATIVE: CASE EVENT DATE: 20161027
